FAERS Safety Report 12711600 (Version 5)
Quarter: 2017Q1

REPORT INFORMATION
  Report Type: Report from Study
  Country: GB (occurrence: GB)
  Receive Date: 20160902
  Receipt Date: 20170110
  Transmission Date: 20170428
  Serious: Yes (Hospitalization, Other)
  Sender: FDA-Public Use
  Company Number: GB-BRISTOL-MYERS SQUIBB COMPANY-BMS-2016-055222

PATIENT
  Age: 66 Year
  Sex: Female

DRUGS (1)
  1. IPILIMUMAB [Suspect]
     Active Substance: IPILIMUMAB
     Indication: MALIGNANT MELANOMA
     Dosage: UNK
     Route: 065
     Dates: start: 20160615

REACTIONS (27)
  - Dry skin [Unknown]
  - Pain [Recovering/Resolving]
  - Local swelling [Unknown]
  - Sleep disorder [Recovered/Resolved]
  - Flatulence [Unknown]
  - Cough [Unknown]
  - Tumour pain [Unknown]
  - Poor quality sleep [Unknown]
  - Nausea [Unknown]
  - Constipation [Unknown]
  - Lower respiratory tract infection [Unknown]
  - Rash pruritic [Recovering/Resolving]
  - Back pain [Recovering/Resolving]
  - Vomiting [Unknown]
  - Colitis [Unknown]
  - Rash macular [Unknown]
  - Decreased appetite [Recovering/Resolving]
  - Diarrhoea [Unknown]
  - Pruritus [Not Recovered/Not Resolved]
  - Limb discomfort [Unknown]
  - Lethargy [Unknown]
  - Musculoskeletal chest pain [Unknown]
  - Mucous stools [Not Recovered/Not Resolved]
  - Abdominal distension [Recovering/Resolving]
  - Fatigue [Unknown]
  - Acne [Unknown]
  - Asthenia [Unknown]

NARRATIVE: CASE EVENT DATE: 20160712
